FAERS Safety Report 5138786-3 (Version None)
Quarter: 2006Q4

REPORT INFORMATION
  Report Type: 
  Country: None (occurrence: None)
  Receive Date: 20061024
  Receipt Date: 20061010
  Transmission Date: 20070319
  Serious: Yes (Other)
  Sender: FDA-Public Use
  Company Number: 2006US-03250

PATIENT
  Age: 38 Year
  Sex: Female

DRUGS (1)
  1. ISOTRETINOIN [Suspect]
     Dosage: 30 MG, BID

REACTIONS (4)
  - DYSPNOEA [None]
  - GINGIVITIS [None]
  - VAGINAL ERYTHEMA [None]
  - VULVOVAGINAL DRYNESS [None]
